FAERS Safety Report 6286492-4 (Version None)
Quarter: 2009Q3

REPORT INFORMATION
  Report Type: 
  Country: None (occurrence: None)
  Receive Date: 20090728
  Receipt Date: 20090720
  Transmission Date: 20100115
  Serious: Yes (Hospitalization)
  Sender: FDA-Public Use
  Company Number: SK-BAXTER-2009BH011845

PATIENT
  Age: 36 Year
  Sex: Female

DRUGS (2)
  1. HOLOXAN BAXTER [Suspect]
     Indication: CERVIX CARCINOMA
     Route: 042
     Dates: start: 20090709, end: 20090709
  2. UROMITEXAN BAXTER [Suspect]
     Indication: CERVIX CARCINOMA
     Route: 065
     Dates: start: 20090709

REACTIONS (2)
  - ENCEPHALITIS [None]
  - NEUROTOXICITY [None]
